FAERS Safety Report 23652950 (Version 1)
Quarter: 2024Q1

REPORT INFORMATION
  Report Type: Spontaneous
  Country: US (occurrence: None)
  Receive Date: 20240319
  Receipt Date: 20240319
  Transmission Date: 20240410
  Serious: No
  Sender: FDA-Public Use
  Company Number: None

PATIENT
  Age: 66 Year
  Sex: Female

DRUGS (1)
  1. AUSTEDO XR [Suspect]
     Active Substance: DEUTETRABENAZINE
     Dosage: FREQUENCY : AT BEDTIME;?
     Route: 048
     Dates: start: 20240313, end: 20240318

REACTIONS (2)
  - Fatigue [None]
  - Product dosage form issue [None]

NARRATIVE: CASE EVENT DATE: 20240314
